FAERS Safety Report 15629656 (Version 2)
Quarter: 2018Q4

REPORT INFORMATION
  Report Type: Spontaneous
  Country: US (occurrence: US)
  Receive Date: 20181117
  Receipt Date: 20181126
  Transmission Date: 20190205
  Serious: Yes (Life-Threatening, Hospitalization, Other)
  Sender: FDA-Public Use
  Company Number: US-ACCORD-092592

PATIENT
  Age: 67 Year
  Sex: Male

DRUGS (11)
  1. TRAZODONE [Suspect]
     Active Substance: TRAZODONE HYDROCHLORIDE
     Indication: PRODUCT USED FOR UNKNOWN INDICATION
     Dosage: 300 MG NIGHTLY, DECREASED TO 150 MG?NIGHTLY.
  2. CEFEPIME [Concomitant]
     Active Substance: CEFEPIME HYDROCHLORIDE
  3. CLONAZEPAM. [Suspect]
     Active Substance: CLONAZEPAM
     Indication: PRODUCT USED FOR UNKNOWN INDICATION
     Dosage: 0.5 MG TWO TIMES A DAY.
  4. AZITHROMYCIN ANHYDROUS. [Concomitant]
     Active Substance: AZITHROMYCIN ANHYDROUS
  5. VANCOMYCIN/VANCOMYCIN HYDROCHLORIDE [Concomitant]
  6. CEFTRIAXONE. [Concomitant]
     Active Substance: CEFTRIAXONE
  7. AMIKACIN. [Concomitant]
     Active Substance: AMIKACIN
  8. LINEZOLID. [Interacting]
     Active Substance: LINEZOLID
     Indication: ANTIBIOTIC THERAPY
  9. ESCITALOPRAM [Suspect]
     Active Substance: ESCITALOPRAM OXALATE
     Indication: PRODUCT USED FOR UNKNOWN INDICATION
     Dosage: 20 MG DAILY
  10. METRONIDAZOLE. [Concomitant]
     Active Substance: METRONIDAZOLE
  11. PIPERACILLIN SODIUM/TAZOBACTAM SODIUM [Concomitant]
     Active Substance: PIPERACILLIN SODIUM\TAZOBACTAM SODIUM

REACTIONS (6)
  - Pneumonia [Unknown]
  - Drug interaction [Unknown]
  - Staphylococcal infection [Unknown]
  - Hypotension [Unknown]
  - Pleural effusion [Unknown]
  - Serotonin syndrome [Recovered/Resolved]
